FAERS Safety Report 23151301 (Version 1)
Quarter: 2023Q4

REPORT INFORMATION
  Report Type: Spontaneous
  Country: CN (occurrence: CN)
  Receive Date: 20231107
  Receipt Date: 20231107
  Transmission Date: 20240109
  Serious: Yes (Other)
  Sender: FDA-Public Use
  Company Number: None

PATIENT
  Age: 27 Year
  Sex: Male
  Weight: 65 kg

DRUGS (2)
  1. OLANZAPINE [Suspect]
     Active Substance: OLANZAPINE
     Indication: Antipsychotic therapy
     Dosage: 20MG,BID
     Route: 048
     Dates: start: 20230531, end: 20230703
  2. RISPERIDONE [Suspect]
     Active Substance: RISPERIDONE
     Indication: Antipsychotic therapy
     Dosage: 4MG,BID
     Route: 048
     Dates: start: 20230626, end: 20230816

REACTIONS (6)
  - Suicidal behaviour [Recovering/Resolving]
  - Intentional self-injury [Recovering/Resolving]
  - Chest discomfort [Recovering/Resolving]
  - Aggression [Recovering/Resolving]
  - Akathisia [Recovering/Resolving]
  - Anxiety [Recovering/Resolving]

NARRATIVE: CASE EVENT DATE: 20230630
